FAERS Safety Report 25841123 (Version 1)
Quarter: 2025Q3

REPORT INFORMATION
  Report Type: Spontaneous
  Country: DO (occurrence: DO)
  Receive Date: 20250924
  Receipt Date: 20250924
  Transmission Date: 20251020
  Serious: Yes (Hospitalization)
  Sender: ASTELLAS
  Company Number: DO-ASTELLAS-2025-AER-052738

PATIENT
  Sex: Male

DRUGS (2)
  1. PROGRAF [Suspect]
     Active Substance: TACROLIMUS
     Indication: Product used for unknown indication
     Route: 050
  2. PROGRAF [Suspect]
     Active Substance: TACROLIMUS
     Route: 050

REACTIONS (2)
  - Investigation abnormal [Unknown]
  - Drug interaction [Unknown]
